FAERS Safety Report 7040231-8 (Version None)
Quarter: 2010Q4

REPORT INFORMATION
  Report Type: 
  Country: None (occurrence: None)
  Receive Date: 20101012
  Receipt Date: 20101005
  Transmission Date: 20110411
  Serious: Yes (Hospitalization)
  Sender: FDA-Public Use
  Company Number: GB-PFIZER INC-2008091575

PATIENT
  Age: 68 Year
  Sex: Female
  Weight: 67.8 kg

DRUGS (1)
  1. SUNITINIB MALATE [Suspect]
     Indication: RENAL CELL CARCINOMA
     Dosage: 25MG ; CYCLIC DAILY
     Route: 048
     Dates: start: 20060630

REACTIONS (1)
  - LOWER RESPIRATORY TRACT INFECTION [None]
